FAERS Safety Report 8847301 (Version 2)
Quarter: 2012Q4

REPORT INFORMATION
  Report Type: 
  Country: US (occurrence: US)
  Receive Date: 20121018
  Receipt Date: 20121108
  Transmission Date: 20130627
  Serious: No
  Sender: FDA-Public Use
  Company Number: US-PFIZER INC-2012258866

PATIENT
  Sex: Female

DRUGS (2)
  1. GABAPENTIN [Suspect]
     Indication: ANXIETY
     Dosage: total dose of 1800mg unknown frequency
  2. GABAPENTIN [Suspect]
     Dosage: total dose of 570mg unknown frequency

REACTIONS (11)
  - Hypokinesia [Unknown]
  - Pain in extremity [Unknown]
  - Chest pain [Unknown]
  - Dizziness [Unknown]
  - Feeling abnormal [Unknown]
  - Headache [Unknown]
  - Pain [Unknown]
  - Condition aggravated [Unknown]
  - Vomiting [Unknown]
  - Off label use [Unknown]
  - Drug ineffective [Unknown]
